FAERS Safety Report 5572103-X (Version None)
Quarter: 2007Q4

REPORT INFORMATION
  Report Type: 
  Country: None (occurrence: None)
  Receive Date: 20071221
  Receipt Date: 20071213
  Transmission Date: 20080405
  Serious: Yes (Death)
  Sender: FDA-Public Use
  Company Number: BE-ABBOTT-07P-013-0427653-00

PATIENT
  Sex: Male

DRUGS (3)
  1. KALETRA [Suspect]
     Indication: HIV INFECTION
     Dosage: 400MG, 2 IN 1 D
     Dates: start: 20070920
  2. TENOFOVIR DISOPROXIL FUMARATE [Concomitant]
     Indication: HIV INFECTION
     Dates: start: 20070920
  3. LAMIVUDINE [Concomitant]
     Indication: HIV INFECTION
     Dates: start: 20070920

REACTIONS (2)
  - DIFFUSE LARGE B-CELL LYMPHOMA [None]
  - SEPTIC SHOCK [None]
